FAERS Safety Report 15346790 (Version 1)
Quarter: 2018Q3

REPORT INFORMATION
  Report Type: Report from Study
  Country: DE (occurrence: DE)
  Receive Date: 20180904
  Receipt Date: 20180904
  Transmission Date: 20181010
  Serious: Yes (Hospitalization)
  Sender: FDA-Public Use
  Company Number: DE-TEVA-2018-DE-937745

PATIENT
  Age: 1 Year
  Sex: Female
  Weight: 10 kg

DRUGS (4)
  1. THIOTEPA. [Suspect]
     Active Substance: THIOTEPA
     Dosage: 100 MILLIGRAM DAILY;
     Route: 042
     Dates: start: 20180506, end: 20180506
  2. FLUDARABINE [Suspect]
     Active Substance: FLUDARABINE PHOSPHATE
     Dosage: 13.8 MILLIGRAM DAILY;
     Route: 042
     Dates: start: 20180501, end: 20180505
  3. TREOSULFAN [Suspect]
     Active Substance: TREOSULFAN
     Dosage: 4.6 GRAM DAILY;
     Route: 042
     Dates: start: 20180502, end: 20180505
  4. BUSULFAN. [Suspect]
     Active Substance: BUSULFAN
     Route: 065

REACTIONS (1)
  - Enterocolitis infectious [Recovered/Resolved]

NARRATIVE: CASE EVENT DATE: 20180718
